FAERS Safety Report 6032585-6 (Version None)
Quarter: 2009Q1

REPORT INFORMATION
  Report Type: 
  Country: None (occurrence: None)
  Receive Date: 20090109
  Receipt Date: 20090107
  Transmission Date: 20090719
  Serious: Yes (Hospitalization)
  Sender: FDA-Public Use
  Company Number: JP-BAYER-200813146BYL

PATIENT
  Age: 3 Year
  Sex: Male

DRUGS (7)
  1. ASPIRIN [Suspect]
     Indication: KAWASAKI'S DISEASE
     Route: 048
  2. ASPIRIN [Suspect]
     Route: 048
  3. ASPIRIN [Suspect]
     Route: 048
  4. IMMUNE GLOBULIN (HUMAN) [Concomitant]
     Indication: KAWASAKI'S DISEASE
     Route: 041
  5. CEFCAPENE PIVOXIL HYDROCHLORIDE [Concomitant]
     Indication: PYREXIA
     Route: 048
  6. CEFTRIAXONE SODIUM [Concomitant]
     Indication: PYREXIA
     Route: 042
  7. FLURBIPROFEN [Concomitant]
     Indication: KAWASAKI'S DISEASE
     Route: 048

REACTIONS (2)
  - DEAFNESS NEUROSENSORY [None]
  - DEAFNESS UNILATERAL [None]
